FAERS Safety Report 4304115-8 (Version None)
Quarter: 2004Q1

REPORT INFORMATION
  Report Type: 
  Country: None (occurrence: None)
  Receive Date: 20040224
  Receipt Date: 20040212
  Transmission Date: 20041129
  Serious: No
  Sender: FDA-Public Use
  Company Number: 04P-167-0250328-00

PATIENT
  Age: 41 Year
  Sex: Female

DRUGS (6)
  1. DEPAKOTE [Suspect]
     Indication: AGITATION
     Dosage: SEE IMAGE
     Route: 048
     Dates: start: 20020509
  2. DEPAKOTE [Suspect]
     Indication: MANIA
     Dosage: SEE IMAGE
     Route: 048
     Dates: start: 20020509
  3. DEPAKOTE [Suspect]
     Indication: MOOD ALTERED
     Dosage: SEE IMAGE
     Route: 048
     Dates: start: 20020509
  4. DEPAKOTE [Suspect]
     Indication: AGITATION
     Dosage: SEE IMAGE
     Route: 048
     Dates: start: 20040114
  5. DEPAKOTE [Suspect]
     Indication: MANIA
     Dosage: SEE IMAGE
     Route: 048
     Dates: start: 20040114
  6. DEPAKOTE [Suspect]
     Indication: MOOD ALTERED
     Dosage: SEE IMAGE
     Route: 048
     Dates: start: 20040114

REACTIONS (3)
  - ATHETOSIS [None]
  - DYSKINESIA [None]
  - INSOMNIA [None]
